FAERS Safety Report 25667954 (Version 2)
Quarter: 2025Q3

REPORT INFORMATION
  Report Type: Spontaneous
  Country: US (occurrence: US)
  Receive Date: 20250812
  Receipt Date: 20250905
  Transmission Date: 20251021
  Serious: No
  Sender: ROCHE
  Company Number: US-ROCHE-10000359735

PATIENT
  Sex: Male

DRUGS (3)
  1. HEMLIBRA [Suspect]
     Active Substance: EMICIZUMAB-KXWH
     Indication: Factor VIII deficiency
     Dosage: FORM STRENGTH: 150MG/ ML AND 105MG/.7 ML
     Route: 058
     Dates: start: 20180404
  2. SEVENFACT SDV [Concomitant]
  3. SEVENFACT SDV [Concomitant]

REACTIONS (1)
  - Haemorrhage [Recovered/Resolved]
